FAERS Safety Report 16444503 (Version 1)
Quarter: 2019Q3

REPORT INFORMATION
  Report Type: Spontaneous
  Country: US (occurrence: US)
  Receive Date: 20190617
  Receipt Date: 20190617
  Transmission Date: 20191004
  Serious: Yes (Hospitalization)
  Sender: FDA-Public Use
  Company Number: None

PATIENT
  Sex: Female

DRUGS (21)
  1. PROTONIX [Concomitant]
     Active Substance: PANTOPRAZOLE SODIUM
  2. METORPOLOL [Concomitant]
     Active Substance: METOPROLOL
  3. ASCORBIC [Concomitant]
  4. LIPITOR [Concomitant]
     Active Substance: ATORVASTATIN CALCIUM
  5. NYSTATIN. [Concomitant]
     Active Substance: NYSTATIN
  6. ASPIRIN. [Concomitant]
     Active Substance: ASPIRIN
  7. VENTOLIN [Concomitant]
     Active Substance: ALBUTEROL SULFATE
  8. VERZENIO [Suspect]
     Active Substance: ABEMACICLIB
     Indication: NEOPLASM MALIGNANT
     Route: 048
  9. TEMOVATE [Concomitant]
     Active Substance: CLOBETASOL PROPIONATE
  10. FEMARA [Concomitant]
     Active Substance: LETROZOLE
  11. WELLESSE [Concomitant]
  12. INCRUSE ELLIPTA [Concomitant]
     Active Substance: UMECLIDINIUM BROMIDE
  13. TIZANIDINE. [Concomitant]
     Active Substance: TIZANIDINE
  14. MECLIZINE [Concomitant]
     Active Substance: MECLIZINE HYDROCHLORIDE
  15. FISH OIL [Concomitant]
     Active Substance: FISH OIL
  16. VITAMIN B12 [Concomitant]
     Active Substance: CYANOCOBALAMIN
  17. HYZAAR [Concomitant]
     Active Substance: HYDROCHLOROTHIAZIDE\LOSARTAN POTASSIUM
  18. LOCOID [Concomitant]
     Active Substance: HYDROCORTISONE BUTYRATE
  19. FLONASE [Concomitant]
     Active Substance: FLUTICASONE PROPIONATE
  20. PLAVIX [Concomitant]
     Active Substance: CLOPIDOGREL BISULFATE
  21. NORCO [Concomitant]
     Active Substance: ACETAMINOPHEN\HYDROCODONE BITARTRATE

REACTIONS (1)
  - Ill-defined disorder [None]
